FAERS Safety Report 4606034-6 (Version None)
Quarter: 2005Q1

REPORT INFORMATION
  Report Type: 
  Country: None (occurrence: None)
  Receive Date: 20050311
  Receipt Date: 20050128
  Transmission Date: 20050727
  Serious: Yes (Life-Threatening, Hospitalization)
  Sender: FDA-Public Use
  Company Number: FR-ROCHE-394635

PATIENT
  Age: 60 Year
  Sex: Female
  Weight: 58 kg

DRUGS (4)
  1. PEGASYS [Suspect]
     Indication: HEPATITIS C
     Route: 058
     Dates: start: 20040927, end: 20041122
  2. COPEGUS [Suspect]
     Indication: HEPATITIS C
     Route: 048
     Dates: start: 20040927, end: 20041126
  3. GELUPRANE [Suspect]
     Indication: DRUG USE FOR UNKNOWN INDICATION
     Dosage: DOSE REGIMEN REPORTED AS 1 TO 2 TABLETS PER INJECTION OF PEGASYS UP TO 6 A DAY.
     Route: 048
     Dates: start: 20040927, end: 20041122
  4. MANTADIX [Suspect]
     Indication: DRUG USE FOR UNKNOWN INDICATION
     Dosage: DOSE REGIMEN REPORTED AS 2-0-2.
     Route: 048
     Dates: start: 20040927, end: 20041126

REACTIONS (6)
  - BRADYARRHYTHMIA [None]
  - BRADYCARDIA [None]
  - CARDIAC ARREST [None]
  - DYSPNOEA [None]
  - HYPOKALAEMIA [None]
  - PLEURAL EFFUSION [None]
